FAERS Safety Report 20777375 (Version 1)
Quarter: 2022Q2

REPORT INFORMATION
  Report Type: Spontaneous
  Country: US (occurrence: US)
  Receive Date: 20220503
  Receipt Date: 20220503
  Transmission Date: 20220721
  Serious: Yes (Other)
  Sender: FDA-Public Use
  Company Number: US-Y-MABS THERAPEUTICS, INC.-SPO2021-US-000424

PATIENT

DRUGS (2)
  1. DANYELZA [Suspect]
     Active Substance: NAXITAMAB-GQGK
     Indication: Neuroblastoma
     Dosage: CYCLE 1, DOSE 1
     Route: 042
     Dates: start: 20210407, end: 20210407
  2. DANYELZA [Suspect]
     Active Substance: NAXITAMAB-GQGK
     Dosage: UNK
     Route: 042
     Dates: start: 20210521, end: 20210521

REACTIONS (4)
  - Electrocardiogram QT prolonged [Unknown]
  - Hypertension [Unknown]
  - Tachycardia [Unknown]
  - Bronchospasm [Unknown]
